FAERS Safety Report 11061086 (Version 2)
Quarter: 2015Q2

REPORT INFORMATION
  Report Type: Report from Study
  Country: CN (occurrence: CN)
  Receive Date: 20150424
  Receipt Date: 20150604
  Transmission Date: 20150821
  Serious: Yes (Death, Life-Threatening)
  Sender: FDA-Public Use
  Company Number: CN-TAKEDA-2015MPI002548

PATIENT

DRUGS (2)
  1. VELCADE [Suspect]
     Active Substance: BORTEZOMIB
     Indication: PLASMA CELL MYELOMA
     Dosage: 2.04 MG, UNK
     Route: 042
     Dates: start: 20150130, end: 20150209
  2. VELCADE [Suspect]
     Active Substance: BORTEZOMIB
     Dosage: 2.04 MG, UNK
     Route: 042
     Dates: start: 20150224, end: 20150306

REACTIONS (1)
  - Lung infection [Fatal]

NARRATIVE: CASE EVENT DATE: 20150413
